FAERS Safety Report 26053565 (Version 1)
Quarter: 2025Q4

REPORT INFORMATION
  Report Type: Spontaneous
  Country: US (occurrence: None)
  Receive Date: 20251116
  Receipt Date: 20251116
  Transmission Date: 20260117
  Serious: Yes (Other)
  Sender: FDA-CTU
  Company Number: None

PATIENT
  Age: 38 Year
  Sex: Female
  Weight: 83.25 kg

DRUGS (6)
  1. MONTELUKAST SODIUM [Suspect]
     Active Substance: MONTELUKAST SODIUM
     Indication: Seasonal allergy
     Dosage: OTHER QUANTITY : 90 TABLET(S);?FREQUENCY : DAILY;?
     Route: 048
     Dates: start: 20251107, end: 20251110
  2. LEVOTHYROXINE [Concomitant]
     Active Substance: LEVOTHYROXINE
  3. AMLODIPINE BESYLATE [Concomitant]
     Active Substance: AMLODIPINE BESYLATE
  4. OLMESARTAN [Concomitant]
     Active Substance: OLMESARTAN
  5. NIkki birth control [Concomitant]
  6. CLARITIN [Concomitant]
     Active Substance: LORATADINE

REACTIONS (8)
  - Dizziness [None]
  - Nausea [None]
  - Syncope [None]
  - Abnormal dreams [None]
  - Abnormal dreams [None]
  - Dissociation [None]
  - Product communication issue [None]
  - Emotional distress [None]

NARRATIVE: CASE EVENT DATE: 20251107
